FAERS Safety Report 8285900-7 (Version None)
Quarter: 2012Q2

REPORT INFORMATION
  Report Type: 
  Country: None (occurrence: None)
  Receive Date: 20120414
  Receipt Date: 20120316
  Transmission Date: 20120825
  Serious: Yes (Hospitalization, Other)
  Sender: FDA-Public Use
  Company Number: PHHO2012IN004405

PATIENT
  Sex: Male
  Weight: 85 kg

DRUGS (13)
  1. PREDNISOLONE [Concomitant]
     Indication: PROPHYLAXIS
     Dosage: 20 MG, QD
     Route: 048
     Dates: start: 20120229
  2. RANTAC [Concomitant]
     Indication: ANTACID THERAPY
     Dosage: 150 MG, BID
     Route: 048
     Dates: start: 20120301
  3. PANTOPRAZOLE SODIUM [Concomitant]
     Indication: PROPHYLAXIS
     Dosage: 40 MG, QD
     Route: 048
     Dates: start: 20120303
  4. ARKAMIN [Concomitant]
     Indication: HYPERTENSION
     Dosage: 100 MG, TID
     Route: 048
     Dates: start: 20120307
  5. AMLONG [Concomitant]
     Indication: HYPERTENSION
     Dosage: 5 MG, BID
     Route: 048
     Dates: start: 20120313
  6. NEORAL [Suspect]
     Dosage: 225 MG, BID
     Route: 048
     Dates: start: 20120319
  7. SEPTRAN [Concomitant]
     Indication: PROPHYLAXIS
     Dosage: 480 MG, QD
     Dates: start: 20120301
  8. SIMULECT [Suspect]
     Indication: RENAL TRANSPLANT
  9. NEORAL [Suspect]
     Indication: RENAL TRANSPLANT
     Dosage: 200 MG, BID
     Route: 048
     Dates: start: 20120227, end: 20120316
  10. MYFORTIC [Suspect]
     Indication: RENAL TRANSPLANT
     Dosage: 360 MG, TID
     Route: 048
     Dates: start: 20120227, end: 20120316
  11. MYFORTIC [Suspect]
     Dosage: 1440 MG, TID
     Route: 048
     Dates: start: 20120319
  12. PRAZOSIN HCL [Concomitant]
     Indication: HYPERTENSION
     Dosage: 5 MG, BID
     Route: 048
     Dates: start: 20120307
  13. DILZEM [Concomitant]
     Indication: PROPHYLAXIS
     Dosage: 90 1/2 QD
     Route: 048
     Dates: start: 20120403

REACTIONS (3)
  - RENAL VEIN THROMBOSIS [None]
  - DEEP VEIN THROMBOSIS [None]
  - KIDNEY TRANSPLANT REJECTION [None]
